FAERS Safety Report 10224911 (Version 1)
Quarter: 2014Q2

REPORT INFORMATION
  Report Type: Spontaneous
  Country: DE (occurrence: DE)
  Receive Date: 20140609
  Receipt Date: 20140609
  Transmission Date: 20141212
  Serious: Yes (Hospitalization)
  Sender: FDA-Public Use
  Company Number: DE-GLAXOSMITHKLINE-D0083701A

PATIENT
  Age: 71 Year
  Sex: Male

DRUGS (3)
  1. TAFINLAR [Suspect]
     Indication: METASTATIC MALIGNANT MELANOMA
     Dosage: 150MG TWICE PER DAY
     Route: 048
     Dates: start: 20140414, end: 20140425
  2. TRANSTEC [Concomitant]
     Indication: TUMOUR PAIN
     Dosage: 35UG EVERY 3 DAYS
     Route: 062
  3. MCP [Concomitant]
     Indication: NAUSEA
     Route: 048

REACTIONS (2)
  - Nausea [Recovering/Resolving]
  - General physical health deterioration [Recovering/Resolving]
